FAERS Safety Report 21958938 (Version 1)
Quarter: 2023Q1

REPORT INFORMATION
  Report Type: Other
  Country: US (occurrence: None)
  Receive Date: 20230206
  Receipt Date: 20230206
  Transmission Date: 20230418
  Serious: Yes (Other)
  Sender: FDA-Public Use
  Company Number: US-Nivagen-000032

PATIENT
  Age: 11 Year
  Sex: Female

DRUGS (2)
  1. GLYCOPYRRONIUM [Suspect]
     Active Substance: GLYCOPYRRONIUM
     Indication: Dyshidrotic eczema
  2. GLYCOPYRRONIUM [Suspect]
     Active Substance: GLYCOPYRRONIUM
     Indication: Hyperhidrosis

REACTIONS (5)
  - Angle closure glaucoma [Recovering/Resolving]
  - Optic neuritis [Recovering/Resolving]
  - IIIrd nerve paralysis [Recovering/Resolving]
  - Aneurysm [Recovering/Resolving]
  - Accidental exposure to product [Recovering/Resolving]
